FAERS Safety Report 4632702-6 (Version None)
Quarter: 2005Q2

REPORT INFORMATION
  Report Type: 
  Country: None (occurrence: None)
  Receive Date: 20050412
  Receipt Date: 20050330
  Transmission Date: 20051028
  Serious: Yes (Life-Threatening)
  Sender: FDA-Public Use
  Company Number: NL-JNJFOC-20050104831

PATIENT
  Sex: Female
  Weight: 66.5 kg

DRUGS (8)
  1. BLINDED; INFLIXIMAB, RECOMBINANT [Suspect]
     Indication: RHEUMATOID ARTHRITIS
     Route: 042
  2. PLACEBO [Suspect]
     Indication: RHEUMATOID ARTHRITIS
     Route: 042
  3. METHOTREXATE [Concomitant]
     Indication: RHEUMATOID ARTHRITIS
  4. FOLIC ACID [Concomitant]
     Indication: RHEUMATOID ARTHRITIS
  5. ETALPHA [Concomitant]
     Indication: RHEUMATOID ARTHRITIS
  6. NOLVADEX [Concomitant]
     Indication: BREAST CANCER
  7. MARCOUMAR [Concomitant]
     Indication: PULMONARY EMBOLISM
  8. DEVARON [Concomitant]
     Indication: RHEUMATOID ARTHRITIS
     Dosage: 400 IE

REACTIONS (1)
  - METASTASES TO PLEURA [None]
